FAERS Safety Report 15978976 (Version 1)
Quarter: 2019Q1

REPORT INFORMATION
  Report Type: Spontaneous
  Country: US (occurrence: US)
  Receive Date: 20190219
  Receipt Date: 20190219
  Transmission Date: 20190418
  Serious: No
  Sender: FDA-Public Use
  Company Number: US-BAUSCH-BL-2019-004358

PATIENT
  Sex: Female
  Weight: 58.57 kg

DRUGS (3)
  1. CLONAZEPAM. [Concomitant]
     Active Substance: CLONAZEPAM
     Indication: SLEEP DISORDER
     Dosage: DAILY AT BEDTIME
     Dates: start: 2006
  2. TRAZODONE [Concomitant]
     Active Substance: TRAZODONE HYDROCHLORIDE
     Indication: SLEEP DISORDER
     Dosage: DAILY AT BEDTIME
     Dates: start: 2015
  3. ATIVAN [Suspect]
     Active Substance: LORAZEPAM
     Indication: PRODUCT USED FOR UNKNOWN INDICATION
     Dosage: SHE MAYBE TOOK 10 FROM THE BOTTLE
     Route: 065
     Dates: start: 201710, end: 201710

REACTIONS (1)
  - Weight decreased [Unknown]
